FAERS Safety Report 19874750 (Version 1)
Quarter: 2021Q3

REPORT INFORMATION
  Report Type: Other
  Country: TN (occurrence: TN)
  Receive Date: 20210923
  Receipt Date: 20210923
  Transmission Date: 20211014
  Serious: Yes (Life-Threatening, Hospitalization)
  Sender: FDA-Public Use
  Company Number: TN-EMD SERONO-9265909

PATIENT
  Age: 28 Year
  Sex: Male

DRUGS (1)
  1. INTERFERON BETA?1A [Suspect]
     Active Substance: INTERFERON BETA-1A
     Indication: RELAPSING-REMITTING MULTIPLE SCLEROSIS
     Route: 058
     Dates: start: 2017

REACTIONS (5)
  - Malignant hypertension [Unknown]
  - Complement factor abnormal [Unknown]
  - Acute kidney injury [Not Recovered/Not Resolved]
  - Thrombotic microangiopathy [Unknown]
  - Status epilepticus [Unknown]

NARRATIVE: CASE EVENT DATE: 2020
